FAERS Safety Report 22227611 (Version 1)
Quarter: 2023Q2

REPORT INFORMATION
  Report Type: Spontaneous
  Country: PT (occurrence: PT)
  Receive Date: 20230419
  Receipt Date: 20230419
  Transmission Date: 20230722
  Serious: Yes (Hospitalization, Other)
  Sender: FDA-Public Use
  Company Number: PT-SUN PHARMACEUTICAL INDUSTRIES LTD-2023R1-385049

PATIENT
  Age: 76 Year
  Sex: Male

DRUGS (1)
  1. LEVETIRACETAM [Suspect]
     Active Substance: LEVETIRACETAM
     Indication: Product used for unknown indication
     Dosage: UNK
     Route: 065

REACTIONS (6)
  - Cholinergic syndrome [Recovering/Resolving]
  - Bradycardia [Recovering/Resolving]
  - Hypotension [Recovering/Resolving]
  - Electrocardiogram QT prolonged [Recovering/Resolving]
  - Muscle contractions involuntary [Recovering/Resolving]
  - Status epilepticus [Recovering/Resolving]
